FAERS Safety Report 13389416 (Version 2)
Quarter: 2017Q2

REPORT INFORMATION
  Report Type: Report from Study
  Country: US (occurrence: US)
  Receive Date: 20170330
  Receipt Date: 20170627
  Transmission Date: 20170830
  Serious: No
  Sender: FDA-Public Use
  Company Number: PHEH2017US009331

PATIENT
  Sex: Female

DRUGS (1)
  1. COSENTYX [Suspect]
     Active Substance: SECUKINUMAB
     Indication: PRODUCT USED FOR UNKNOWN INDICATION
     Dosage: UNK
     Route: 058
     Dates: start: 20161115

REACTIONS (11)
  - Psoriasis [Unknown]
  - Temperature intolerance [Unknown]
  - Dizziness [Unknown]
  - Injection site haemorrhage [Unknown]
  - Dry skin [Unknown]
  - Rhinorrhoea [Not Recovered/Not Resolved]
  - Pain [Unknown]
  - Inflammation [Unknown]
  - Skin discolouration [Recovering/Resolving]
  - Skin plaque [Unknown]
  - Therapeutic response unexpected [Unknown]
